FAERS Safety Report 12946264 (Version 2)
Quarter: 2017Q1

REPORT INFORMATION
  Report Type: Spontaneous
  Country: US (occurrence: US)
  Receive Date: 20161115
  Receipt Date: 20170214
  Transmission Date: 20170428
  Serious: No
  Sender: FDA-Public Use
  Company Number: US-TAIHO ONCOLOGY INC-EU-2016-02933

PATIENT
  Age: 65 Year
  Sex: Female

DRUGS (11)
  1. LEXAPRO [Concomitant]
     Active Substance: ESCITALOPRAM OXALATE
     Dosage: NI
  2. SALBUTAMOL [Concomitant]
     Active Substance: ALBUTEROL
     Dosage: NI
  3. COMPAZINE [Concomitant]
     Active Substance: PROCHLORPERAZINE MALEATE
     Dosage: NI
  4. LORAZEPAM. [Concomitant]
     Active Substance: LORAZEPAM
     Dosage: NI
  5. ZOFRAN [Concomitant]
     Active Substance: ONDANSETRON HYDROCHLORIDE
     Dosage: NI
  6. GABAPENTIN. [Concomitant]
     Active Substance: GABAPENTIN
     Dosage: NI
  7. CLONAZEPAM. [Concomitant]
     Active Substance: CLONAZEPAM
     Dosage: NI
  8. FENTANYL. [Concomitant]
     Active Substance: FENTANYL
     Dosage: NI
  9. LONSURF [Suspect]
     Active Substance: TIPIRACIL HYDROCHLORIDE\TRIFLURIDINE
     Indication: RECTOSIGMOID CANCER
     Route: 048
     Dates: start: 20160622
  10. LOVASTATIN. [Concomitant]
     Active Substance: LOVASTATIN
     Dosage: NI
  11. IBUPROFEN/HYDROCODONE BITARTRATE [Concomitant]
     Dosage: NI

REACTIONS (9)
  - Vomiting [Unknown]
  - Stomatitis [Unknown]
  - Decreased appetite [Unknown]
  - Fatigue [Unknown]
  - Nausea [Unknown]
  - Dry mouth [Unknown]
  - Abdominal pain [Unknown]
  - Nasopharyngitis [Unknown]
  - Hot flush [Unknown]

NARRATIVE: CASE EVENT DATE: 2016
